FAERS Safety Report 8052367-3 (Version None)
Quarter: 2012Q1

REPORT INFORMATION
  Report Type: 
  Country: None (occurrence: None)
  Receive Date: 20120117
  Receipt Date: 20120117
  Transmission Date: 20120608
  Serious: Yes (Hospitalization)
  Sender: FDA-Public Use
  Company Number: None

PATIENT
  Age: 69 Year
  Sex: Male
  Weight: 148.6 kg

DRUGS (2)
  1. FUROSEMIDE [Suspect]
     Indication: OEDEMA
     Dosage: 80 MG BID PO
     Route: 048
     Dates: start: 20050906, end: 20120110
  2. METOLAZONE [Suspect]
     Indication: OEDEMA
     Dosage: 2.5 MG PO
     Route: 048
     Dates: start: 20090729, end: 20120110

REACTIONS (1)
  - RENAL FAILURE ACUTE [None]
